FAERS Safety Report 8981990 (Version 1)
Quarter: 2012Q4

REPORT INFORMATION
  Report Type: 
  Country: US (occurrence: US)
  Receive Date: 20121223
  Receipt Date: 20121223
  Transmission Date: 20130627
  Serious: Yes (Other)
  Sender: FDA-Public Use
  Company Number: US-009507513-1212USA007380

PATIENT
  Sex: Male

DRUGS (1)
  1. INTRONA [Suspect]
     Indication: HEPATITIS C
     Dosage: UNK UNK, q3w
     Dates: start: 19940107, end: 19941209

REACTIONS (2)
  - Hypothyroidism [Unknown]
  - Hepatitis C [Unknown]
